FAERS Safety Report 9286841 (Version 1)
Quarter: 2013Q2

REPORT INFORMATION
  Report Type: Spontaneous
  Country: AT (occurrence: None)
  Receive Date: 20130509
  Receipt Date: 20130509
  Transmission Date: 20140414
  Serious: Yes (Hospitalization)
  Sender: FDA-Public Use
  Company Number: SYM-2013-03452

PATIENT
  Age: 30 Year
  Sex: Female

DRUGS (2)
  1. WELLBUTRIN XR [Suspect]
     Indication: INTENTIONAL OVERDOSE
     Dosage: 150 MG, 20 IN 1 D, ORAL
     Route: 048
     Dates: start: 20121010, end: 20121010
  2. OTHER THERAPEUTIC PRODUCTS [Suspect]
     Indication: INTENTIONAL OVERDOSE

REACTIONS (5)
  - Poisoning deliberate [None]
  - Intentional overdose [None]
  - Mucosal inflammation [None]
  - Skin irritation [None]
  - Somnolence [None]
